FAERS Safety Report 9868118 (Version 2)
Quarter: 2014Q3

REPORT INFORMATION
  Report Type: Spontaneous
  Country: SY (occurrence: SY)
  Receive Date: 20140204
  Receipt Date: 20140909
  Transmission Date: 20150326
  Serious: Yes (Hospitalization)
  Sender: FDA-Public Use
  Company Number: SY-GLAXOSMITHKLINE-B0965901A

PATIENT
  Sex: Female

DRUGS (2)
  1. PENICILLIN [Concomitant]
     Active Substance: PENICILLIN
  2. ZINNAT [Suspect]
     Active Substance: CEFUROXIME AXETIL
     Indication: URINARY TRACT INFECTION
     Route: 065

REACTIONS (2)
  - Urticaria [Unknown]
  - Anaphylactic shock [Recovering/Resolving]
